FAERS Safety Report 5527812-5 (Version None)
Quarter: 2007Q4

REPORT INFORMATION
  Report Type: 
  Country: None (occurrence: None)
  Receive Date: 20071128
  Receipt Date: 20071018
  Transmission Date: 20080405
  Serious: Yes (Other)
  Sender: FDA-Public Use
  Company Number: B0485684A

PATIENT
  Age: 77 Year
  Sex: Male
  Weight: 48 kg

DRUGS (4)
  1. ARIXTRA [Suspect]
     Indication: THROMBOSIS PROPHYLAXIS
     Dosage: 2.5MG PER DAY
     Route: 058
     Dates: start: 20070801, end: 20070803
  2. PRODIF [Concomitant]
     Indication: FUNGAL INFECTION
     Dosage: 200MG PER DAY
     Route: 042
     Dates: start: 20070731, end: 20070813
  3. PANSPORIN [Concomitant]
     Indication: PROPHYLAXIS
     Dosage: 2G PER DAY
     Route: 042
     Dates: start: 20070731, end: 20070803
  4. SERENACE [Concomitant]
     Indication: RESTLESSNESS
     Dosage: 5MG PER DAY
     Route: 042
     Dates: start: 20070731, end: 20070731

REACTIONS (1)
  - BLOOD CREATINE PHOSPHOKINASE INCREASED [None]
